FAERS Safety Report 25808523 (Version 1)
Quarter: 2025Q3

REPORT INFORMATION
  Report Type: Spontaneous
  Country: US (occurrence: US)
  Receive Date: 20250916
  Receipt Date: 20250916
  Transmission Date: 20251021
  Serious: No
  Sender: DR REDDYS
  Company Number: US-DRL-USA-USA/2025/08/012109

PATIENT

DRUGS (1)
  1. ALLERGY RELIEF NON DROWSY (FEXOFENADINE HYDROCHLORIDE) [Suspect]
     Active Substance: FEXOFENADINE HYDROCHLORIDE
     Indication: Hypersensitivity

REACTIONS (1)
  - Drug ineffective [Unknown]
